FAERS Safety Report 25841343 (Version 1)
Quarter: 2025Q3

REPORT INFORMATION
  Report Type: Spontaneous
  Country: US (occurrence: US)
  Receive Date: 20250924
  Receipt Date: 20250924
  Transmission Date: 20251021
  Serious: No
  Sender: MADRIGAL PHARMACEUTICALS
  Company Number: US-MADRIGAL PHARMACEUTICALS, INC-2025USREZ11016

PATIENT

DRUGS (8)
  1. REZDIFFRA [Suspect]
     Active Substance: RESMETIROM
     Indication: Metabolic dysfunction-associated steatohepatitis
     Route: 048
     Dates: start: 20250610
  2. UNSPECIFIED INGREDIENT [Concomitant]
     Active Substance: UNSPECIFIED INGREDIENT
     Indication: Cystoid macular oedema
  3. XARELTO [Concomitant]
     Active Substance: RIVAROXABAN
     Indication: Prophylaxis
     Dosage: 20 MILLIGRAM, QD
  4. LOSARTAN [Concomitant]
     Active Substance: LOSARTAN
     Indication: Hypertension
     Dosage: 25 MILLIGRAM, QD
  5. LANTUS [Concomitant]
     Active Substance: INSULIN GLARGINE
     Indication: Diabetes mellitus
  6. NOVOLOG [Concomitant]
     Active Substance: INSULIN ASPART
     Indication: Diabetes mellitus
  7. PIOGLITAZONE [Concomitant]
     Active Substance: PIOGLITAZONE
     Indication: Diabetes mellitus
     Dosage: 15 MILLIGRAM, QD
  8. MELOXICAM [Concomitant]
     Active Substance: MELOXICAM
     Indication: Back disorder

REACTIONS (5)
  - Blood glucose fluctuation [Unknown]
  - Sleep disorder due to general medical condition, insomnia type [Unknown]
  - Unevaluable event [Unknown]
  - Flatulence [Not Recovered/Not Resolved]
  - Diarrhoea [Recovered/Resolved]

NARRATIVE: CASE EVENT DATE: 20250101
